FAERS Safety Report 20692741 (Version 2)
Quarter: 2022Q3

REPORT INFORMATION
  Report Type: Spontaneous
  Country: US (occurrence: US)
  Receive Date: 20220409
  Receipt Date: 20220707
  Transmission Date: 20221026
  Serious: Yes (Other)
  Sender: FDA-Public Use
  Company Number: US-JNJFOC-20220408496

PATIENT
  Age: 62 Year
  Sex: Female

DRUGS (5)
  1. ELMIRON [Suspect]
     Active Substance: PENTOSAN POLYSULFATE SODIUM
     Indication: Cystitis interstitial
     Dosage: 100 MG THREE TIMES A DAY
     Route: 048
     Dates: start: 20030601, end: 20160601
  2. GABAPENTIN [Concomitant]
     Active Substance: GABAPENTIN
     Indication: Pain management
     Dates: start: 20050101, end: 20180101
  3. GABAPENTIN [Concomitant]
     Active Substance: GABAPENTIN
     Dates: start: 20180102
  4. OXYCODONE [Concomitant]
     Active Substance: OXYCODONE
     Indication: Pain management
     Dates: start: 20010101
  5. TIZANIDINE [Concomitant]
     Active Substance: TIZANIDINE
     Indication: Pain management
     Dates: start: 20110101

REACTIONS (2)
  - Macular degeneration [Not Recovered/Not Resolved]
  - Depression [Not Recovered/Not Resolved]

NARRATIVE: CASE EVENT DATE: 20140101
